FAERS Safety Report 22094656 (Version 1)
Quarter: 2023Q1

REPORT INFORMATION
  Report Type: Spontaneous
  Country: US (occurrence: US)
  Receive Date: 20230314
  Receipt Date: 20230314
  Transmission Date: 20230418
  Serious: No
  Sender: FDA-Public Use
  Company Number: US-Dermavant-000360

PATIENT
  Age: 40 Year
  Sex: Female

DRUGS (1)
  1. TAPINAROF [Suspect]
     Active Substance: TAPINAROF
     Indication: Perioral dermatitis
     Dosage: APPLIED TO FACE
     Route: 061
     Dates: start: 20230112, end: 20230113

REACTIONS (3)
  - Skin irritation [Recovering/Resolving]
  - Headache [Recovered/Resolved]
  - Off label use [Recovered/Resolved]

NARRATIVE: CASE EVENT DATE: 20230112
